FAERS Safety Report 25987156 (Version 2)
Quarter: 2025Q4

REPORT INFORMATION
  Report Type: Spontaneous
  Country: US (occurrence: US)
  Receive Date: 20251103
  Receipt Date: 20251103
  Transmission Date: 20260118
  Serious: No
  Sender: CURRAX PHARMACEUTICALS
  Company Number: US-CURRAX PHARMACEUTICALS LLC-US-2024CUR004215

PATIENT
  Sex: Female

DRUGS (1)
  1. CONTRAVE [Suspect]
     Active Substance: BUPROPION HYDROCHLORIDE\NALTREXONE HYDROCHLORIDE
     Indication: Weight control
     Dosage: STRENGTH: 8/90 MG, UNKNOWN DOSE AND FREQUENCY
     Route: 065

REACTIONS (2)
  - Ill-defined disorder [Unknown]
  - Drug ineffective [Unknown]
